FAERS Safety Report 10760426 (Version 2)
Quarter: 2015Q1

REPORT INFORMATION
  Report Type: Spontaneous
  Country: US (occurrence: AT)
  Receive Date: 20150204
  Receipt Date: 20150205
  Transmission Date: 20150721
  Serious: Yes (Other)
  Sender: FDA-Public Use
  Company Number: 2014SP005903

PATIENT
  Sex: Female
  Weight: 140 kg

DRUGS (3)
  1. METRONIDAZOLE SODIUM [Suspect]
     Active Substance: METRONIDAZOLE SODIUM
     Indication: COLITIS
  2. VANCOMYCIN [Suspect]
     Active Substance: VANCOMYCIN
     Indication: COLITIS
  3. TYGACIL [Concomitant]
     Active Substance: TIGECYCLINE
     Indication: COLITIS

REACTIONS (1)
  - Drug ineffective [Unknown]
